FAERS Safety Report 6557538-0 (Version None)
Quarter: 2010Q1

REPORT INFORMATION
  Report Type: 
  Country: None (occurrence: None)
  Receive Date: 20100129
  Receipt Date: 20100125
  Transmission Date: 20100710
  Serious: Yes (Death, Hospitalization)
  Sender: FDA-Public Use
  Company Number: JP-BRISTOL-MYERS SQUIBB COMPANY-14627426

PATIENT
  Age: 59 Year
  Sex: Male

DRUGS (37)
  1. SPRYCEL [Suspect]
     Indication: ACUTE LYMPHOCYTIC LEUKAEMIA
     Dosage: 100MG:25MAY09-3JUN 20MG:JUL-15JUL 90MG:16JUL-2AUG 140MG:3AUG-11AUG09
     Route: 048
     Dates: start: 20090330, end: 20090407
  2. SULFAMETHOXAZOLE AND TRIMETHOPRIM [Concomitant]
     Indication: PROPHYLAXIS
     Dosage: 1 DOSAGE FORM = 1 TAB
     Route: 048
  3. ALLOPURINOL [Concomitant]
     Indication: PROPHYLAXIS
     Dosage: 200MG/D(25MAY09) 300MG(26MAY09-ONG)
     Route: 048
     Dates: start: 20090525
  4. POTASSIUM CITRATE [Concomitant]
     Indication: PROPHYLAXIS
     Dosage: 2 TABS TILL 8 APR09 2 DOSAGE FORM = 2 TABS(25MAY09) 3 TABS(26MAY09-ONG) INJ-20ML(2MAY-01JUN09)
     Route: 048
     Dates: end: 20090601
  5. SODIUM CITRATE [Concomitant]
     Dates: end: 20090408
  6. ETIZOLAM [Concomitant]
     Dosage: TABS
     Route: 048
  7. PREDNISOLONE [Concomitant]
     Indication: ACUTE LYMPHOCYTIC LEUKAEMIA
     Dosage: 10MG(10JUL-13JUL) 30MG(13-15JUL) 50MG(22MAY09)(16JUL-18JUL) INJECTION
     Route: 042
     Dates: start: 20090522
  8. NORMAL SALINE [Concomitant]
     Route: 042
  9. CHLORPHENIRAMINE MALEATE [Concomitant]
     Dosage: INJ (IV) 5MG/D(21-26MAY09) ORAL(5MG/D)
     Route: 042
     Dates: start: 20090521
  10. HYDROCORTISONE SODIUM SUCCINATE [Concomitant]
     Route: 042
  11. INSULIN HUMAN [Concomitant]
     Route: 058
  12. FURSULTIAMINE [Concomitant]
     Route: 048
     Dates: end: 20090408
  13. FUROSEMIDE [Concomitant]
     Route: 048
     Dates: start: 20090718, end: 20090718
  14. DANAPAROID SODIUM [Concomitant]
     Route: 042
     Dates: start: 20090721
  15. VITAMIN B1 TAB [Concomitant]
     Dosage: INJ
     Route: 042
     Dates: start: 20090522
  16. METOCLOPRAMIDE HCL [Concomitant]
     Route: 042
  17. FILGRASTIM [Concomitant]
     Route: 048
     Dates: end: 20090420
  18. MEROPENEM [Concomitant]
     Route: 042
     Dates: start: 20090709, end: 20090718
  19. VORICONAZOLE [Concomitant]
     Route: 042
     Dates: end: 20090330
  20. FAMOTIDINE [Concomitant]
     Route: 048
  21. MINOCYCLINE HCL [Concomitant]
     Dosage: INJ
     Route: 042
     Dates: start: 20090713, end: 20090718
  22. MICAFUNGIN SODIUM [Concomitant]
     Route: 042
     Dates: start: 20090718
  23. LENOGRASTIM [Concomitant]
     Route: 042
  24. MAXIPIME [Concomitant]
     Route: 042
     Dates: start: 20090521, end: 20090529
  25. PROVIDONE IODINE [Concomitant]
     Dosage: SOLN
     Route: 061
  26. ITRACONAZOLE [Concomitant]
     Dosage: CAPS
     Route: 048
  27. LACTIC ACID BACTERIA [Concomitant]
     Dosage: 3 DF = 3 TABS
     Route: 048
  28. VALACYCLOVIR HCL [Concomitant]
     Dosage: TABS
     Route: 048
  29. LOXOPROFEN SODIUM [Concomitant]
     Dosage: TAB
     Route: 048
  30. REBAMIPIDE [Concomitant]
     Indication: PROPHYLAXIS
     Route: 048
  31. GLYCYRRHIZINIC ACID [Concomitant]
     Dosage: INJ
     Route: 042
  32. POLYETHYLENE GLYCOL [Concomitant]
     Route: 042
     Dates: start: 20090709, end: 20090709
  33. TAZOBACTAM SODIUM [Concomitant]
     Route: 042
     Dates: start: 20090719, end: 20090727
  34. VANCOMYCIN [Concomitant]
     Route: 042
     Dates: start: 20090718, end: 20090727
  35. CALCIUM GLUCONATE [Concomitant]
     Route: 042
     Dates: start: 20090722
  36. METILDIGOXIN [Concomitant]
     Route: 048
  37. POTASSIUM CHLORIDE [Concomitant]
     Route: 042
     Dates: start: 20090522, end: 20090601

REACTIONS (10)
  - BLOOD GLUCOSE INCREASED [None]
  - DECREASED APPETITE [None]
  - DISSEMINATED INTRAVASCULAR COAGULATION [None]
  - GASTROINTESTINAL MUCOSAL DISORDER [None]
  - GENERALISED OEDEMA [None]
  - MALIGNANT NEOPLASM PROGRESSION [None]
  - NEUROPATHY PERIPHERAL [None]
  - PANCYTOPENIA [None]
  - SEPSIS [None]
  - SOMNOLENCE [None]
